FAERS Safety Report 19149048 (Version 2)
Quarter: 2021Q2

REPORT INFORMATION
  Report Type: Other
  Country: ES (occurrence: ES)
  Receive Date: 20210416
  Receipt Date: 20210507
  Transmission Date: 20210717
  Serious: Yes (Hospitalization)
  Sender: FDA-Public Use
  Company Number: ES-ALSI-2021000111

PATIENT
  Age: 22 Year
  Sex: Male

DRUGS (1)
  1. NITROUS OXIDE. [Suspect]
     Active Substance: NITROUS OXIDE
     Indication: SUBSTANCE USE

REACTIONS (3)
  - Subacute combined cord degeneration [Recovering/Resolving]
  - Drug abuse [Unknown]
  - Vitamin B12 deficiency [Unknown]
